FAERS Safety Report 5746093-0 (Version None)
Quarter: 2008Q2

REPORT INFORMATION
  Report Type: 
  Country: None (occurrence: None)
  Receive Date: 20080522
  Receipt Date: 20070904
  Transmission Date: 20081010
  Serious: No
  Sender: FDA-Public Use
  Company Number: A0678426A

PATIENT
  Age: 75 Year
  Sex: Female

DRUGS (5)
  1. BACTROBAN [Suspect]
     Indication: DRUG USE FOR UNKNOWN INDICATION
     Dosage: 1APP SINGLE DOSE
     Route: 045
     Dates: start: 20070902
  2. NASONEX [Concomitant]
  3. CLARITIN [Concomitant]
  4. NEXIUM [Concomitant]
  5. XOPENEX [Concomitant]

REACTIONS (1)
  - BLOOD PRESSURE INCREASED [None]
